FAERS Safety Report 19079076 (Version 2)
Quarter: 2021Q2

REPORT INFORMATION
  Report Type: Report from Study
  Country: RU (occurrence: RU)
  Receive Date: 20210331
  Receipt Date: 20210428
  Transmission Date: 20210717
  Serious: Yes (Other)
  Sender: FDA-Public Use
  Company Number: RU-INCYTE CORPORATION-2020IN013188

PATIENT

DRUGS (2)
  1. HYDROXYCARBAMIDE [Concomitant]
     Active Substance: HYDROXYUREA
     Indication: PRODUCT USED FOR UNKNOWN INDICATION
     Dosage: 0.5 TO 1 G, QD
     Route: 065
  2. JAKAVI [Suspect]
     Active Substance: RUXOLITINIB
     Indication: PRIMARY MYELOFIBROSIS
     Dosage: 15 MG, BID
     Route: 048
     Dates: start: 20180103

REACTIONS (8)
  - Malaise [Recovering/Resolving]
  - Gastritis [Unknown]
  - Therapy partial responder [Recovering/Resolving]
  - Pancytopenia [Recovering/Resolving]
  - Varices oesophageal [Unknown]
  - Abdominal discomfort [Recovering/Resolving]
  - Asthenia [Recovering/Resolving]
  - Thrombocytopenia [Recovering/Resolving]

NARRATIVE: CASE EVENT DATE: 201804
